FAERS Safety Report 7542210-0 (Version None)
Quarter: 2011Q2

REPORT INFORMATION
  Report Type: 
  Country: None (occurrence: None)
  Receive Date: 20110524
  Receipt Date: 20110308
  Transmission Date: 20111010
  Serious: No
  Sender: FDA-Public Use
  Company Number: 028961

PATIENT
  Sex: Male
  Weight: 155.6 kg

DRUGS (11)
  1. LORAZEPAM [Concomitant]
  2. VITAMIN A AND D IN COMBINATION [Concomitant]
  3. ARTHROTEC [Concomitant]
  4. AMITRIPTYLINE HCL [Concomitant]
  5. DEXTROAMPHETAMINE /00016601/ [Concomitant]
  6. FLUOXETINE HCL [Concomitant]
  7. CIMZIA [Suspect]
     Indication: CROHN'S DISEASE
     Dosage: (400 MG 1X/2 WEEKS, INDUCTION 0-2-4 WEEKS SUBCUTANEOUS)
     Route: 058
     Dates: start: 20110308
  8. DEXLANSOPRAZOLE [Concomitant]
  9. HYDROCODONE [Concomitant]
  10. LYRICA [Concomitant]
  11. M.V.I. [Concomitant]

REACTIONS (1)
  - INJECTION SITE PAIN [None]
